FAERS Safety Report 8088962-5 (Version None)
Quarter: 2012Q1

REPORT INFORMATION
  Report Type: 
  Country: None (occurrence: None)
  Receive Date: 20120128
  Receipt Date: 20110623
  Transmission Date: 20120608
  Serious: Yes (Other)
  Sender: FDA-Public Use
  Company Number: US-ABBOTT-11P-163-0734971-00

PATIENT
  Age: 39 Year
  Sex: Female

DRUGS (21)
  1. LYRICA [Concomitant]
     Indication: PRODUCT USED FOR UNKNOWN INDICATION
  2. XOPENEX [Concomitant]
     Indication: HYPERSENSITIVITY
  3. PROVIGIL [Concomitant]
     Indication: SOMNOLENCE
     Dosage: EVERY MORNING
  4. MAXALT-MLT [Concomitant]
     Indication: MIGRAINE
     Dosage: ONE TAB AS NEEDED UP TO 3 IN ONE DAY
  5. TRAMADOL HCL [Concomitant]
     Indication: PAIN
     Dosage: EVERY SIX HOURS AS NEEDED FOR PAIN
     Route: 048
  6. UNKNOWN NASAL SPRAY [Concomitant]
     Indication: PRODUCT USED FOR UNKNOWN INDICATION
     Dosage: ONE PUFF IN AM AND ON PM IN EACH NOSTRIL
  7. ALVESCO [Concomitant]
     Indication: PRODUCT USED FOR UNKNOWN INDICATION
     Dosage: ONE PUFF IN AM AND ON PM EVERY DAY
  8. CLARITIN [Concomitant]
     Indication: PRODUCT USED FOR UNKNOWN INDICATION
     Dosage: AT NIGHT
  9. ETODOLAC [Concomitant]
     Indication: PAIN
  10. LISINOPRIL [Concomitant]
     Indication: PRODUCT USED FOR UNKNOWN INDICATION
     Dosage: AT NIGHT
  11. AMITRIPTYLINE HCL [Concomitant]
     Indication: PAIN
  12. FOLIC ACID [Concomitant]
     Indication: PRODUCT USED FOR UNKNOWN INDICATION
     Dosage: TAKE TWO IN AM AND ONE AT NIGHT
  13. AMITRIPTYLINE HCL [Concomitant]
     Indication: INSOMNIA
     Dosage: AT BEDTIME
  14. ESTRADIOL [Concomitant]
     Indication: PRODUCT USED FOR UNKNOWN INDICATION
     Dosage: IN AM
  15. FLEXERIL [Concomitant]
     Indication: PRODUCT USED FOR UNKNOWN INDICATION
  16. SAVELLA [Concomitant]
     Indication: PRODUCT USED FOR UNKNOWN INDICATION
     Dosage: ONE IN AM AND ONE IN PM
  17. PATANASE NASAL SPRAY [Concomitant]
     Indication: PRODUCT USED FOR UNKNOWN INDICATION
     Dosage: ONE PUFF IN AM AND ON PM IN EACH NOSTRIL
  18. HUMIRA [Suspect]
     Indication: RHEUMATOID ARTHRITIS
     Dates: start: 20100101, end: 20110415
  19. METHOTREXATE [Concomitant]
     Indication: PRODUCT USED FOR UNKNOWN INDICATION
     Dosage: 2ML/25MG INJCT 0.6 ML WEEKLY
  20. HUMIRA [Suspect]
     Dates: start: 20110521
  21. VITAMIN D [Concomitant]
     Indication: PRODUCT USED FOR UNKNOWN INDICATION

REACTIONS (9)
  - LYMPHADENITIS [None]
  - PAIN [None]
  - CHOLECYSTECTOMY [None]
  - PRODUCT QUALITY ISSUE [None]
  - FATIGUE [None]
  - HYPERTENSION [None]
  - SCRATCH [None]
  - RASH MACULAR [None]
  - LYMPH NODE PAIN [None]
